FAERS Safety Report 6954855-7 (Version None)
Quarter: 2010Q3

REPORT INFORMATION
  Report Type: 
  Country: None (occurrence: None)
  Receive Date: 20100830
  Receipt Date: 20100823
  Transmission Date: 20110219
  Serious: Yes (Death)
  Sender: FDA-Public Use
  Company Number: US-CELGENEUS-163-21880-10082291

PATIENT
  Sex: Male

DRUGS (3)
  1. REVLIMID [Suspect]
     Indication: MULTIPLE MYELOMA
     Route: 048
     Dates: start: 20060201
  2. REVLIMID [Suspect]
     Dosage: 5MG-10MG
     Route: 048
     Dates: start: 20061001
  3. REVLIMID [Suspect]
     Route: 048
     Dates: start: 20100801, end: 20100801

REACTIONS (2)
  - PULMONARY EMBOLISM [None]
  - SEPTIC SHOCK [None]
